FAERS Safety Report 6422322-5 (Version None)
Quarter: 2009Q4

REPORT INFORMATION
  Report Type: 
  Country: None (occurrence: None)
  Receive Date: 20091030
  Receipt Date: 20091020
  Transmission Date: 20100525
  Serious: Yes (Other)
  Sender: FDA-Public Use
  Company Number: AU-ELI_LILLY_AND_COMPANY-AU200909000722

PATIENT
  Sex: Male

DRUGS (12)
  1. FORTEO [Suspect]
     Indication: OSTEOPOROSIS
     Dosage: 20 UG, DAILY (1/D)
     Route: 058
     Dates: start: 20090716, end: 20090724
  2. CALTRATE + VITAMIN D [Concomitant]
     Indication: OSTEOPOROSIS
     Dosage: 600 MG, UNK
     Dates: start: 20081016
  3. CARDIZEM [Concomitant]
     Dosage: 240 MG, UNKNOWN
  4. COVERSYL [Concomitant]
     Dosage: 10 MG, UNKNOWN
  5. IKOREL [Concomitant]
     Indication: ANGINA PECTORIS
     Dosage: 10 MG, UNKNOWN
  6. LASIX [Concomitant]
     Dosage: 40 MG, UNK
  7. LIPITOR [Concomitant]
     Dosage: 20 MG, UNK
  8. MS CONTIN [Concomitant]
     Indication: ANALGESIC THERAPY
     Dosage: 60 MG, UNK
  9. NEXIUM [Concomitant]
     Indication: GASTROOESOPHAGEAL REFLUX DISEASE
     Dosage: 40 MG, UNK
  10. PRAMIN [Concomitant]
     Indication: NAUSEA
     Dosage: 10 MG, UNK
  11. TESTOSTERONE [Concomitant]
     Indication: HYPOGONADISM MALE
     Dosage: 10 MG, UNK
  12. VITAMIN D3 [Concomitant]
     Indication: VITAMIN D DEFICIENCY
     Dosage: 25000 U, UNK
     Dates: start: 20090515

REACTIONS (9)
  - ASTHENIA [None]
  - DECREASED APPETITE [None]
  - DEPRESSED MOOD [None]
  - DISORIENTATION [None]
  - DIZZINESS [None]
  - DYSPNOEA [None]
  - FEELING HOT [None]
  - INSOMNIA [None]
  - NAUSEA [None]
